FAERS Safety Report 13616539 (Version 1)
Quarter: 2017Q2

REPORT INFORMATION
  Report Type: Spontaneous
  Country: US (occurrence: US)
  Receive Date: 20170606
  Receipt Date: 20170606
  Transmission Date: 20170830
  Serious: No
  Sender: FDA-Public Use
  Company Number: None

PATIENT
  Age: 56 Year
  Sex: Female
  Weight: 103.5 kg

DRUGS (21)
  1. UNITHROID [Concomitant]
     Active Substance: LEVOTHYROXINE SODIUM
  2. AMBIEN ER [Concomitant]
  3. TUMARIC [Concomitant]
  4. NORETHINDRONE. [Suspect]
     Active Substance: NORETHINDRONE
     Indication: MENSTRUATION IRREGULAR
     Dosage: ?          QUANTITY:1 TABLET(S);?
     Route: 048
     Dates: start: 20170527, end: 20170603
  5. COMPAZINE [Concomitant]
     Active Substance: PROCHLORPERAZINE MALEATE
  6. XANAX [Concomitant]
     Active Substance: ALPRAZOLAM
  7. ESTRADIOL. [Concomitant]
     Active Substance: ESTRADIOL
  8. PROBIOTIC [Concomitant]
     Active Substance: PROBIOTICS NOS
  9. BIOTIN [Concomitant]
     Active Substance: BIOTIN
  10. CUMIN. [Concomitant]
     Active Substance: CUMIN
  11. METAMUCIL [Concomitant]
     Active Substance: PLANTAGO SEED
  12. HYDROCODONE [Concomitant]
     Active Substance: HYDROCODONE
  13. ZANAFLEX [Concomitant]
     Active Substance: TIZANIDINE HYDROCHLORIDE
  14. CALCIUM MAGNESIUM ZINC D-3 [Concomitant]
  15. CHLORPHENIRAMINE MALEATE. [Concomitant]
     Active Substance: CHLORPHENIRAMINE MALEATE
  16. GUAIFENESIN. [Concomitant]
     Active Substance: GUAIFENESIN
  17. RELPAX [Concomitant]
     Active Substance: ELETRIPTAN HYDROBROMIDE
  18. MULTI VITAMIN [Concomitant]
     Active Substance: VITAMINS
  19. NORTHINE ER [Concomitant]
  20. NORVASC [Concomitant]
     Active Substance: AMLODIPINE BESYLATE
  21. LISINOPRIL. [Concomitant]
     Active Substance: LISINOPRIL

REACTIONS (11)
  - Feeling hot [None]
  - Breast mass [None]
  - Swelling face [None]
  - Nausea [None]
  - Oedema [None]
  - Breast pain [None]
  - Insomnia [None]
  - Headache [None]
  - Migraine [None]
  - Erythema [None]
  - Vision blurred [None]
